FAERS Safety Report 24051726 (Version 7)
Quarter: 2025Q3

REPORT INFORMATION
  Report Type: Spontaneous
  Country: EU (occurrence: EU)
  Receive Date: 20240704
  Receipt Date: 20250803
  Transmission Date: 20251021
  Serious: Yes (Death, Hospitalization, Other)
  Sender: ALEXION PHARMACEUTICALS
  Company Number: 2021A104732

PATIENT
  Sex: Female
  Weight: 65 kg

DRUGS (15)
  1. FULVESTRANT [Suspect]
     Active Substance: FULVESTRANT
     Indication: Breast cancer metastatic
     Dosage: 500 MILLIGRAM, QD
     Dates: start: 20191220
  2. FULVESTRANT [Suspect]
     Active Substance: FULVESTRANT
     Indication: Breast cancer
  3. FULVESTRANT [Suspect]
     Active Substance: FULVESTRANT
     Indication: Hormone receptor positive HER2 negative breast cancer
  4. RIBOCICLIB [Suspect]
     Active Substance: RIBOCICLIB
     Indication: Hormone receptor positive HER2 negative breast cancer
     Dosage: 400 MG, QD (REGIMEN 21 DAYS INTAKE, 7 DAYS PAUSE)
     Dates: start: 20191220, end: 20200312
  5. RIBOCICLIB [Suspect]
     Active Substance: RIBOCICLIB
     Dosage: 600 MG, QD (REGIMEN 21 DAYS INTAKE, 7 DAYS PAUSE)
     Dates: start: 20200313, end: 20200604
  6. RIBOCICLIB [Suspect]
     Active Substance: RIBOCICLIB
     Dosage: 400 MG, QD (REGIMEN 21 DAYS INTAKE, 7 DAYS PAUSE)
     Dates: start: 20200605, end: 20200702
  7. RIBOCICLIB [Suspect]
     Active Substance: RIBOCICLIB
     Dosage: 600 MG, QD (REGIMEN 21 DAYS INTAKE, 7 DAYS PAUSE)
     Dates: start: 20200703, end: 20210308
  8. RIBOCICLIB [Suspect]
     Active Substance: RIBOCICLIB
     Dosage: 400 MG, QD (REGIMEN 21 DAYS INTAKE, 7 DAYS PAUSE)
     Dates: start: 20210319, end: 20220310
  9. RIBOCICLIB [Suspect]
     Active Substance: RIBOCICLIB
     Dosage: 200 MG, QD (REGIMEN 21 DAYS INTAKE, 7 DAYS PAUSE)
     Dates: start: 20220318, end: 20221010
  10. RIBOCICLIB [Suspect]
     Active Substance: RIBOCICLIB
     Dosage: 200 MG, QD (REGIMEN 21 DAYS INTAKE, 7 DAYS PAUSE)
     Dates: start: 20221028, end: 20230216
  11. RIBOCICLIB [Suspect]
     Active Substance: RIBOCICLIB
     Dosage: 200 MG, QD (REGIMEN 21 DAYS INTAKE, 7 DAYS PAUSE)
     Dates: start: 20230317, end: 20231107
  12. RIBOCICLIB [Suspect]
     Active Substance: RIBOCICLIB
     Route: 065
  13. AMANTADINE [Concomitant]
     Active Substance: AMANTADINE
     Indication: Parkinson^s disease
     Dates: start: 20231028, end: 20231107
  14. L DOPA [Concomitant]
     Active Substance: LEVODOPA
     Indication: Parkinson^s disease
     Dates: start: 20231028, end: 20231107
  15. L DOPA [Concomitant]
     Active Substance: LEVODOPA
     Indication: Parkinsonism
     Dosage: 100 MG, TID (3X)
     Dates: start: 20231028, end: 20231107

REACTIONS (29)
  - Metastases to liver [Fatal]
  - Breast cancer [Fatal]
  - Malignant neoplasm progression [Fatal]
  - Hepatic failure [Fatal]
  - Parkinsonism [Fatal]
  - Dysphagia [Fatal]
  - Dysarthria [Fatal]
  - Fall [Recovering/Resolving]
  - Endocarditis [Unknown]
  - Head injury [Unknown]
  - Spinal cord haematoma [Unknown]
  - Inflammation [Unknown]
  - Respiratory failure [Unknown]
  - Aspiration [Recovering/Resolving]
  - Gaze palsy [Unknown]
  - Polyneuropathy [Unknown]
  - General physical health deterioration [Recovering/Resolving]
  - Choking [Recovering/Resolving]
  - Corticobasal degeneration [Unknown]
  - Rib fracture [Recovered/Resolved with Sequelae]
  - Pain [Unknown]
  - Dyspnoea [Unknown]
  - Mobility decreased [Not Recovered/Not Resolved]
  - Spinal fracture [Recovering/Resolving]
  - Haematoma [Recovering/Resolving]
  - Sleep disorder [Unknown]
  - Dizziness [Unknown]
  - Off label use [Unknown]
  - Fall [Recovering/Resolving]

NARRATIVE: CASE EVENT DATE: 20230202
